FAERS Safety Report 10763962 (Version 2)
Quarter: 2018Q1

REPORT INFORMATION
  Report Type: Other
  Country: US (occurrence: US)
  Receive Date: 20150204
  Receipt Date: 20180130
  Transmission Date: 20180508
  Serious: Yes (Hospitalization, Other)
  Sender: FDA-Public Use
  Company Number: US-ACORDA-ACO_102517_2014

PATIENT
  Age: 56 Year
  Sex: Female
  Weight: 78.91 kg

DRUGS (16)
  1. VALACYCLOVIR HYDROCHLORIDE. [Concomitant]
     Active Substance: VALACYCLOVIR HYDROCHLORIDE
     Indication: PRODUCT USED FOR UNKNOWN INDICATION
     Dosage: 500 MG, UNK
     Dates: start: 201301
  2. AMPYRA [Suspect]
     Active Substance: DALFAMPRIDINE
     Indication: GAIT DISTURBANCE
     Dosage: 10 MG, BID
     Route: 048
     Dates: start: 2010, end: 201403
  3. TRAMADOL. [Concomitant]
     Active Substance: TRAMADOL
     Indication: PRODUCT USED FOR UNKNOWN INDICATION
     Dosage: 50 MG, UNK
  4. PRAMIPEXOLE. [Concomitant]
     Active Substance: PRAMIPEXOLE
     Indication: PRODUCT USED FOR UNKNOWN INDICATION
     Dosage: 1 MG, UNK
     Dates: start: 2007
  5. AMPYRA [Suspect]
     Active Substance: DALFAMPRIDINE
     Indication: MULTIPLE SCLEROSIS
     Dosage: 10 MG, QD
     Route: 048
     Dates: start: 201403
  6. BACLOFEN. [Concomitant]
     Active Substance: BACLOFEN
     Indication: PRODUCT USED FOR UNKNOWN INDICATION
     Dosage: 20 MG, UNK
  7. BYSTOLIC [Suspect]
     Active Substance: NEBIVOLOL HYDROCHLORIDE
     Indication: HEART RATE INCREASED
     Dosage: UNK
     Dates: start: 201403
  8. LEXAPRO [Concomitant]
     Active Substance: ESCITALOPRAM OXALATE
     Indication: PRODUCT USED FOR UNKNOWN INDICATION
     Dosage: 20 MG, UNK
  9. HYDROCHLOROTHIAZIDE. [Concomitant]
     Active Substance: HYDROCHLOROTHIAZIDE
     Indication: PRODUCT USED FOR UNKNOWN INDICATION
     Dosage: 25 MG, UNK
     Dates: start: 2011
  10. AFRIN [Suspect]
     Active Substance: OXYMETAZOLINE
     Indication: EPISTAXIS
     Dosage: UNK
     Route: 065
     Dates: start: 2014
  11. CELEBREX [Concomitant]
     Active Substance: CELECOXIB
     Indication: PRODUCT USED FOR UNKNOWN INDICATION
     Dosage: 200 MG, UNK
     Dates: start: 2004
  12. BYSTOLIC [Suspect]
     Active Substance: NEBIVOLOL HYDROCHLORIDE
     Indication: HYPERTENSION
     Dosage: 5 MG, UNK
     Dates: start: 2010
  13. ANTIINFLAMMATORY AGENTS [Suspect]
     Active Substance: UNSPECIFIED INGREDIENT
     Indication: MULTIPLE SCLEROSIS
     Dosage: UNK
     Route: 042
     Dates: start: 1987
  14. AMPHETAMINE [Concomitant]
     Active Substance: AMPHETAMINE
     Indication: PRODUCT USED FOR UNKNOWN INDICATION
     Dosage: 30 MG, UNK
  15. SAVELLA [Concomitant]
     Active Substance: MILNACIPRAN HYDROCHLORIDE
     Indication: PRODUCT USED FOR UNKNOWN INDICATION
     Dosage: 50 MG, UNK
     Dates: start: 2010
  16. GABAPENTIN. [Concomitant]
     Active Substance: GABAPENTIN
     Indication: PRODUCT USED FOR UNKNOWN INDICATION
     Dosage: 300 MG, UNK

REACTIONS (32)
  - Vaginal prolapse [Unknown]
  - Wound [Unknown]
  - Fall [Recovered/Resolved]
  - Confusional state [Unknown]
  - Insomnia [Unknown]
  - Mydriasis [Unknown]
  - Bladder prolapse [Unknown]
  - Heart rate increased [Recovering/Resolving]
  - Blood pressure decreased [Recovered/Resolved]
  - Face injury [Recovered/Resolved]
  - Surgery [Not Recovered/Not Resolved]
  - Blood pressure increased [Recovering/Resolving]
  - Loss of consciousness [Recovered/Resolved]
  - Neurogenic bladder [Not Recovered/Not Resolved]
  - Decreased immune responsiveness [Recovered/Resolved]
  - Staphylococcal infection [Unknown]
  - Haemorrhage [Recovered/Resolved]
  - Influenza [Unknown]
  - Stress [Unknown]
  - Sepsis [Recovered/Resolved]
  - Back disorder [Unknown]
  - Fall [Recovered/Resolved]
  - Pneumonia [Recovered/Resolved]
  - Epistaxis [Unknown]
  - Rectal prolapse [Unknown]
  - Blood pressure abnormal [Unknown]
  - Syncope [Recovered/Resolved]
  - Skin disorder [Unknown]
  - Pulmonary embolism [Unknown]
  - Dizziness postural [Recovering/Resolving]
  - Syncope [Recovered/Resolved]
  - Inappropriate schedule of drug administration [Unknown]

NARRATIVE: CASE EVENT DATE: 201010
